FAERS Safety Report 4686312-5 (Version None)
Quarter: 2005Q2

REPORT INFORMATION
  Report Type: 
  Country: None (occurrence: None)
  Receive Date: 20050609
  Receipt Date: 20050428
  Transmission Date: 20051028
  Serious: Yes (Other)
  Sender: FDA-Public Use
  Company Number: PHEH2005US04907

PATIENT
  Age: 67 Year
  Sex: Female

DRUGS (7)
  1. MAXALT /USA/ [Concomitant]
  2. COQ10 [Concomitant]
  3. VITAMIN E [Concomitant]
  4. CENESTIN [Concomitant]
  5. GLUCOSAMINE [Concomitant]
  6. WELCHOL [Concomitant]
  7. ELIDEL [Suspect]
     Indication: BLEPHARITIS
     Route: 061
     Dates: start: 20050427, end: 20050428

REACTIONS (7)
  - ANAPHYLACTIC REACTION [None]
  - EYE SWELLING [None]
  - LOCAL SWELLING [None]
  - SWELLING FACE [None]
  - THROAT IRRITATION [None]
  - THROAT TIGHTNESS [None]
  - VOMITING [None]
